FAERS Safety Report 9492765 (Version 1)
Quarter: 2013Q3

REPORT INFORMATION
  Report Type: Spontaneous
  Country: US (occurrence: US)
  Receive Date: 20130830
  Receipt Date: 20130830
  Transmission Date: 20140515
  Serious: Yes (Death)
  Sender: FDA-Public Use
  Company Number: US-GLAXOSMITHKLINE-B0919338A

PATIENT
  Age: 27 Year
  Sex: Female

DRUGS (5)
  1. POTIGA [Suspect]
     Indication: PARTIAL SEIZURES
     Dosage: 250MG THREE TIMES PER DAY
     Route: 048
     Dates: start: 20060922
  2. ZONISAMIDE [Concomitant]
  3. GABITRIL [Concomitant]
  4. GABAPENTIN [Concomitant]
  5. LORAZEPAM [Concomitant]

REACTIONS (1)
  - Periventricular nodular heterotopia [Fatal]
